FAERS Safety Report 23839700 (Version 3)
Quarter: 2024Q2

REPORT INFORMATION
  Report Type: Report from Study
  Country: US (occurrence: US)
  Receive Date: 20240510
  Receipt Date: 20240629
  Transmission Date: 20240716
  Serious: Yes (Hospitalization)
  Sender: FDA-Public Use
  Company Number: US-JNJFOC-20240504159

PATIENT
  Age: 45 Year
  Sex: Female

DRUGS (9)
  1. SPRAVATO [Suspect]
     Active Substance: ESKETAMINE
     Indication: Depression
     Dosage: 56 MG, 1 TOTAL DOSE
     Dates: start: 20230221, end: 20230221
  2. SPRAVATO [Suspect]
     Active Substance: ESKETAMINE
     Indication: Major depression
     Dosage: 84 MG, 61 TOTAL DOSES
     Dates: start: 20230223, end: 20240425
  3. ZOLOFT [Concomitant]
     Active Substance: SERTRALINE HYDROCHLORIDE
     Indication: Major depression
     Route: 065
  4. SEROQUEL [Concomitant]
     Active Substance: QUETIAPINE FUMARATE
     Indication: Major depression
     Route: 065
  5. TRAZODONE [Concomitant]
     Active Substance: TRAZODONE HYDROCHLORIDE
     Indication: Depression
  6. CLONIDINE [Concomitant]
     Active Substance: CLONIDINE
  7. PROPRANOLOL HYDROCHLORIDE [Concomitant]
     Active Substance: PROPRANOLOL HYDROCHLORIDE
  8. LATUDA [Concomitant]
     Active Substance: LURASIDONE HYDROCHLORIDE
  9. DULOXETINE [Concomitant]
     Active Substance: DULOXETINE

REACTIONS (3)
  - Suicide attempt [Recovering/Resolving]
  - Overdose [Unknown]
  - Major depression [Recovered/Resolved]

NARRATIVE: CASE EVENT DATE: 20240401
